FAERS Safety Report 4975381-0 (Version None)
Quarter: 2006Q2

REPORT INFORMATION
  Report Type: 
  Country: None (occurrence: None)
  Receive Date: 20060411
  Receipt Date: 20060327
  Transmission Date: 20061013
  Serious: Yes (Other)
  Sender: FDA-Public Use
  Company Number: 2006-DE-01447MO

PATIENT
  Age: 78 Year
  Sex: Female

DRUGS (4)
  1. ORAMORPH 10 MG (MORPHINE SULFATE) [Suspect]
     Indication: BREAKTHROUGH PAIN
     Dosage: PO
     Route: 048
  2. MARCUMAR [Concomitant]
  3. LAXOBERAL (SODIUM PICOSULFATE) [Concomitant]
  4. DURAGESIC-100 [Concomitant]

REACTIONS (1)
  - BRONCHOSPASM [None]
